FAERS Safety Report 7326187-9 (Version None)
Quarter: 2011Q1

REPORT INFORMATION
  Report Type: 
  Country: None (occurrence: None)
  Receive Date: 20110302
  Receipt Date: 20110217
  Transmission Date: 20110831
  Serious: Yes (Life-Threatening)
  Sender: FDA-Public Use
  Company Number: TR-ELI_LILLY_AND_COMPANY-TR201102004979

PATIENT
  Sex: Female
  Weight: 20 kg

DRUGS (2)
  1. SERTRALINE [Concomitant]
     Indication: ANXIETY
     Dosage: 25 MG, DAILY (1/D)
     Route: 048
     Dates: start: 20110204, end: 20110216
  2. STRATTERA [Suspect]
     Indication: ATTENTION DEFICIT/HYPERACTIVITY DISORDER
     Dosage: 25 MG, DAILY (1/D)
     Route: 048
     Dates: start: 20110107, end: 20110216

REACTIONS (2)
  - ABNORMAL BEHAVIOUR [None]
  - NERVOUSNESS [None]
